FAERS Safety Report 8443826-X (Version None)
Quarter: 2012Q2

REPORT INFORMATION
  Report Type: 
  Country: None (occurrence: None)
  Receive Date: 20120618
  Receipt Date: 20120606
  Transmission Date: 20120825
  Serious: Yes (Other)
  Sender: FDA-Public Use
  Company Number: US-SANOFI-AVENTIS-2012SA040725

PATIENT
  Age: 51 Year
  Sex: Male

DRUGS (2)
  1. LOVENOX [Suspect]
     Dates: start: 20120501
  2. ANTIBIOTICS [Suspect]

REACTIONS (5)
  - DRUG ADMINISTERED AT INAPPROPRIATE SITE [None]
  - POSTOPERATIVE WOUND INFECTION [None]
  - CONTUSION [None]
  - IMPAIRED HEALING [None]
  - INTERNATIONAL NORMALISED RATIO ABNORMAL [None]
